FAERS Safety Report 9090940 (Version 1)
Quarter: 2013Q1

REPORT INFORMATION
  Report Type: Spontaneous
  Country: GB (occurrence: GB)
  Receive Date: 20130131
  Receipt Date: 20130131
  Transmission Date: 20140127
  Serious: Yes (Other)
  Sender: FDA-Public Use
  Company Number: GB-TEVA-382354ISR

PATIENT
  Age: 84 Year
  Sex: Male

DRUGS (11)
  1. AZILECT [Suspect]
     Indication: PARKINSON^S DISEASE
     Route: 048
     Dates: start: 20121201, end: 20121214
  2. NOVORAPID [Concomitant]
     Route: 030
  3. LEVEMIR [Concomitant]
     Route: 030
  4. OMEPRAZOLE [Concomitant]
     Route: 048
  5. ALENDRONATE [Concomitant]
     Route: 048
  6. BISOPROLOL [Concomitant]
     Route: 048
  7. CALCICHEW [Concomitant]
     Dosage: TWO DAILY
     Route: 048
  8. BUMETANIDE [Concomitant]
  9. LISINOPRIL [Concomitant]
  10. ATORVASTATIN [Concomitant]
  11. WARFARIN [Concomitant]

REACTIONS (1)
  - Hypoglycaemia [Recovered/Resolved]
